FAERS Safety Report 7344807-X (Version None)
Quarter: 2011Q1

REPORT INFORMATION
  Report Type: 
  Country: None (occurrence: None)
  Receive Date: 20110307
  Receipt Date: 20110307
  Transmission Date: 20110831
  Serious: Yes (Hospitalization, Disabling)
  Sender: FDA-Public Use
  Company Number: None

PATIENT
  Age: 58 Year
  Sex: Female
  Weight: 105.2 kg

DRUGS (1)
  1. ENOXAPARIN [Suspect]
     Indication: PULMONARY EMBOLISM
     Dosage: 110 MG Q12H SQ
     Dates: start: 20101115, end: 20101204

REACTIONS (4)
  - RETROPERITONEAL HAEMATOMA [None]
  - HAEMOGLOBIN DECREASED [None]
  - SUBDURAL HAEMATOMA [None]
  - HAEMATOMA [None]
